FAERS Safety Report 26186451 (Version 1)
Quarter: 2025Q4

REPORT INFORMATION
  Report Type: Spontaneous
  Country: US (occurrence: None)
  Receive Date: 20251219
  Receipt Date: 20251219
  Transmission Date: 20260118
  Serious: Yes (Hospitalization)
  Sender: FDA-CTU
  Company Number: None

PATIENT
  Age: 87 Year
  Sex: Male

DRUGS (1)
  1. DARATUMUMAB\HYALURONIDASE-FIHJ [Suspect]
     Active Substance: DARATUMUMAB\HYALURONIDASE-FIHJ
     Indication: Plasma cell myeloma
     Dosage: 1800 MG QWEEK SQ
     Route: 058
     Dates: start: 20250616

REACTIONS (7)
  - Blood creatinine increased [None]
  - Acute kidney injury [None]
  - Dehydration [None]
  - Malaise [None]
  - Cholelithiasis [None]
  - Cholecystitis acute [None]
  - Cholelithiasis [None]

NARRATIVE: CASE EVENT DATE: 20250616
